FAERS Safety Report 8970777 (Version 1)
Quarter: 2012Q4

REPORT INFORMATION
  Report Type: 
  Country: IT (occurrence: IT)
  Receive Date: 20121217
  Receipt Date: 20121217
  Transmission Date: 20130627
  Serious: Yes (Other)
  Sender: FDA-Public Use
  Company Number: IT-PFIZER INC-2012314749

PATIENT
  Age: 81 Year
  Sex: Male

DRUGS (1)
  1. TOTALIP [Suspect]
     Indication: HYPERCHOLESTEROLAEMIA
     Dosage: 20 mg, daily
     Route: 048
     Dates: start: 20100102, end: 20120419

REACTIONS (3)
  - Myalgia [Recovered/Resolved]
  - Blood creatine phosphokinase increased [Unknown]
  - Myoglobin blood increased [Unknown]
